FAERS Safety Report 14943976 (Version 3)
Quarter: 2018Q3

REPORT INFORMATION
  Report Type: Spontaneous
  Country: JP (occurrence: JP)
  Receive Date: 20180528
  Receipt Date: 20180706
  Transmission Date: 20181010
  Serious: Yes (Hospitalization, Other)
  Sender: FDA-Public Use
  Company Number: JP-GLAXOSMITHKLINE-JP2018093886

PATIENT
  Age: 45 Year
  Sex: Male

DRUGS (1)
  1. VOLTAREN [Suspect]
     Active Substance: DICLOFENAC SODIUM
     Indication: TENDON PAIN
     Dosage: 75 MG, UNK
     Route: 048
     Dates: start: 200501, end: 200703

REACTIONS (9)
  - Dermatitis exfoliative generalised [Unknown]
  - Blood pressure increased [Recovered/Resolved]
  - Spinal deformity [Unknown]
  - Axial spondyloarthritis [Unknown]
  - Psoriatic arthropathy [Recovered/Resolved]
  - Rash [Unknown]
  - Gastric ulcer perforation [Recovered/Resolved]
  - Tendonitis [Unknown]
  - Influenza [Recovered/Resolved]

NARRATIVE: CASE EVENT DATE: 2007
